FAERS Safety Report 4804817-0 (Version None)
Quarter: 2005Q4

REPORT INFORMATION
  Report Type: 
  Country: None (occurrence: None)
  Receive Date: 20051017
  Receipt Date: 20051008
  Transmission Date: 20060501
  Serious: Yes (Hospitalization, Other)
  Sender: FDA-Public Use
  Company Number: 2005064272

PATIENT
  Age: 74 Year
  Sex: Female
  Weight: 63.5036 kg

DRUGS (4)
  1. BEXTRA [Suspect]
     Indication: ARTHRITIS
     Dosage: 1 IN 1 D, ORAL
     Route: 048
     Dates: end: 20040701
  2. CRESTOR [Suspect]
     Indication: ILL-DEFINED DISORDER
     Dosage: ORAL
     Route: 048
     Dates: end: 20040701
  3. PROZAC [Concomitant]
  4. RESTORIL [Concomitant]

REACTIONS (8)
  - ASTHENIA [None]
  - BALANCE DISORDER [None]
  - BLOOD POTASSIUM INCREASED [None]
  - BONE DENSITY DECREASED [None]
  - FEELING ABNORMAL [None]
  - HEPATIC FAILURE [None]
  - KIDNEY INFECTION [None]
  - RENAL FAILURE [None]
